FAERS Safety Report 16329212 (Version 2)
Quarter: 2019Q2

REPORT INFORMATION
  Report Type: Report from Study
  Country: None (occurrence: JP)
  Receive Date: 20190520
  Receipt Date: 20190528
  Transmission Date: 20190711
  Serious: Yes (Death)
  Sender: FDA-Public Use
  Company Number: JP-ABBVIE-19S-087-2787026-00

PATIENT
  Age: 66 Year
  Sex: Male

DRUGS (5)
  1. DUODOPA [Suspect]
     Active Substance: CARBIDOPA\LEVODOPA
     Dosage: MD: 4 ML??CD: 1.7 ML/HR ? 16 HRS??ED: 1 ML/UNIT ? 3 TIMES
     Route: 050
     Dates: start: 20180524, end: 20181101
  2. DUODOPA [Suspect]
     Active Substance: CARBIDOPA\LEVODOPA
     Indication: PARKINSON^S DISEASE
     Route: 050
     Dates: start: 20180515
  3. DUODOPA [Suspect]
     Active Substance: CARBIDOPA\LEVODOPA
     Dosage: MD: 4 ML??CD: 2.0 ML/HR ? 16 HRS??ED: 1 ML/UNIT ? 3 TIMES
     Route: 050
     Dates: start: 20181101, end: 20181108
  4. ROTIGOTINE [Concomitant]
     Active Substance: ROTIGOTINE
     Indication: PARKINSON^S DISEASE
     Route: 062
     Dates: end: 20181204
  5. DUODOPA [Suspect]
     Active Substance: CARBIDOPA\LEVODOPA
     Dosage: MD: 4 ML??CD: 1.8 ML/HR ? 16 HRS??ED: 1 ML/UNIT ? 2 TIMES
     Route: 050
     Dates: start: 20181108, end: 20181204

REACTIONS (3)
  - Asphyxia [Fatal]
  - Aspiration [Fatal]
  - Dyskinesia [Recovered/Resolved]

NARRATIVE: CASE EVENT DATE: 20181102
